FAERS Safety Report 24315856 (Version 1)
Quarter: 2024Q3

REPORT INFORMATION
  Report Type: Spontaneous
  Country: AU (occurrence: AU)
  Receive Date: 20240913
  Receipt Date: 20240913
  Transmission Date: 20241016
  Serious: Yes (Hospitalization)
  Sender: RANBAXY
  Company Number: AU-SUN PHARMACEUTICAL INDUSTRIES LTD-2024R1-467561

PATIENT
  Age: 72 Year
  Sex: Male

DRUGS (8)
  1. LEUCOVORIN CALCIUM [Suspect]
     Active Substance: LEUCOVORIN CALCIUM
     Indication: Product used for unknown indication
     Dosage: 720 MILLIGRAM, MONTHLY
     Route: 042
     Dates: start: 20240304
  2. LEUCOVORIN CALCIUM [Suspect]
     Active Substance: LEUCOVORIN CALCIUM
     Dosage: 688 MILLIGRAM, MONTHLY
     Route: 042
     Dates: start: 20240429, end: 20240429
  3. OXALIPLATIN [Suspect]
     Active Substance: OXALIPLATIN
     Indication: Product used for unknown indication
     Dosage: 153 MILLIGRAM, MONTHLY
     Route: 042
     Dates: start: 20240304
  4. OXALIPLATIN [Suspect]
     Active Substance: OXALIPLATIN
     Dosage: 146 MILLIGRAM, MONTHLY
     Route: 042
     Dates: start: 20240429, end: 20240429
  5. FLUOROURACIL [Suspect]
     Active Substance: FLUOROURACIL
     Indication: Product used for unknown indication
     Dosage: 4320 MILLIGRAM, MONTHLY
     Route: 042
     Dates: start: 20240304
  6. FLUOROURACIL [Suspect]
     Active Substance: FLUOROURACIL
     Dosage: 688 MILLIGRAM, MONTHLY
     Route: 042
     Dates: start: 20240429, end: 20240429
  7. FLUOROURACIL [Suspect]
     Active Substance: FLUOROURACIL
     Dosage: 4128 MILLIGRAM, MONTHLY
     Route: 042
     Dates: start: 20240429
  8. NIVOLUMAB [Suspect]
     Active Substance: NIVOLUMAB
     Indication: Product used for unknown indication
     Dosage: 240 MILLIGRAM, MONTHLY
     Route: 042
     Dates: start: 20240304, end: 20240429

REACTIONS (1)
  - Enteritis [Recovering/Resolving]

NARRATIVE: CASE EVENT DATE: 20240419
